FAERS Safety Report 5202923-2 (Version None)
Quarter: 2006Q4

REPORT INFORMATION
  Report Type: 
  Country: None (occurrence: None)
  Receive Date: 20061016
  Receipt Date: 20060830
  Transmission Date: 20070319
  Serious: No
  Sender: FDA-Public Use
  Company Number: 2006SP003156

PATIENT
  Sex: Female

DRUGS (7)
  1. LUNESTA [Suspect]
     Dosage: ORAL
     Route: 048
  2. PROVIGIL [Suspect]
     Indication: BIPOLAR DISORDER
     Dosage: ORAL
     Route: 048
  3. LEXAPRO [Suspect]
     Dosage: ORAL
     Route: 048
  4. FOLTX [Suspect]
     Dosage: ORAL
     Route: 048
  5. MOBIC [Suspect]
     Dosage: ORAL
     Route: 048
  6. ESTRADIOL [Suspect]
     Dosage: ORAL
     Route: 048
  7. CLONAZEPAM [Suspect]
     Dosage: ORAL
     Route: 048

REACTIONS (2)
  - DRUG INTERACTION [None]
  - SOMNOLENCE [None]
